FAERS Safety Report 9043044 (Version 1)
Quarter: 2013Q1

REPORT INFORMATION
  Report Type: Report from Study
  Country: US (occurrence: US)
  Receive Date: 20130129
  Receipt Date: 20130129
  Transmission Date: 20140127
  Serious: No
  Sender: FDA-Public Use
  Company Number: US-ABBOTT-12P-163-0889828-00

PATIENT
  Age: 48 None
  Sex: Female

DRUGS (8)
  1. HUMIRA 40 MG/0.8 ML PEN [Suspect]
     Indication: PSORIASIS
     Dates: start: 20111202, end: 20111223
  2. UNKNOWN MEDICATION [Concomitant]
     Indication: PSORIASIS
     Route: 061
  3. UNKNOWN MEDICATION [Concomitant]
     Indication: PSORIASIS
     Route: 061
  4. SIMVASTATIN [Concomitant]
     Indication: BLOOD CHOLESTEROL
  5. LISINOPRIL [Concomitant]
     Indication: BLOOD PRESSURE
  6. AMLODIPINE [Concomitant]
     Indication: BLOOD PRESSURE
  7. GABAPENTIN [Concomitant]
     Indication: PRODUCT USED FOR UNKNOWN INDICATION
  8. TOPROL [Concomitant]
     Indication: BLOOD PRESSURE

REACTIONS (9)
  - Gingival bleeding [Not Recovered/Not Resolved]
  - Pain [Not Recovered/Not Resolved]
  - Pyrexia [Not Recovered/Not Resolved]
  - Decreased appetite [Not Recovered/Not Resolved]
  - Diarrhoea [Not Recovered/Not Resolved]
  - Hyperhidrosis [Not Recovered/Not Resolved]
  - Asthenia [Not Recovered/Not Resolved]
  - Rash generalised [Unknown]
  - Headache [Not Recovered/Not Resolved]
